FAERS Safety Report 21530267 (Version 1)
Quarter: 2022Q4

REPORT INFORMATION
  Report Type: Spontaneous
  Country: US (occurrence: None)
  Receive Date: 20221028
  Receipt Date: 20221028
  Transmission Date: 20230112
  Serious: Yes (Life-Threatening, Hospitalization)
  Sender: FDA-Public Use
  Company Number: None

PATIENT

DRUGS (3)
  1. SPIRONOLACTONE [Suspect]
     Active Substance: SPIRONOLACTONE
  2. POTASSIUM CHLORIDE [Suspect]
     Active Substance: POTASSIUM CHLORIDE
  3. FUROSEMIDE [Suspect]
     Active Substance: FUROSEMIDE

REACTIONS (6)
  - Hepatic cirrhosis [None]
  - Dyspnoea [None]
  - Blood potassium increased [None]
  - Acute kidney injury [None]
  - Urine sodium increased [None]
  - Renal tubular necrosis [None]

NARRATIVE: CASE EVENT DATE: 20220520
